FAERS Safety Report 18243265 (Version 1)
Quarter: 2020Q3

REPORT INFORMATION
  Report Type: Spontaneous
  Country: US (occurrence: US)
  Receive Date: 20200908
  Receipt Date: 20200908
  Transmission Date: 20201103
  Serious: Yes (Hospitalization)
  Sender: FDA-Public Use
  Company Number: US-JNJFOC-20200847913

PATIENT
  Age: 50 Year
  Sex: Male

DRUGS (1)
  1. RIVAROXABAN [Suspect]
     Active Substance: RIVAROXABAN
     Indication: CARDIAC VENTRICULAR THROMBOSIS
     Route: 048

REACTIONS (7)
  - Cerebral haemorrhage [Unknown]
  - Acute respiratory failure [Unknown]
  - Intraventricular haemorrhage [Unknown]
  - Off label use [Unknown]
  - Vasogenic cerebral oedema [Unknown]
  - Labelled drug-drug interaction medication error [Unknown]
  - Product use in unapproved indication [Unknown]
